FAERS Safety Report 8989266 (Version 1)
Quarter: 2012Q4

REPORT INFORMATION
  Report Type: 
  Country: JP (occurrence: JP)
  Receive Date: 20121228
  Receipt Date: 20121228
  Transmission Date: 20130627
  Serious: Yes (Other)
  Sender: FDA-Public Use
  Company Number: PHHY2012JP120050

PATIENT
  Age: 61 Year
  Sex: Female

DRUGS (18)
  1. VOLTAREN [Suspect]
     Indication: RHEUMATOID ARTHRITIS
     Dosage: 2 DF, daily
     Route: 048
  2. PREDNISOLONE [Suspect]
     Dosage: 1 DF, daily
  3. TOCILIZUMAB [Suspect]
     Indication: RHEUMATOID ARTHRITIS
     Dosage: 528 mg per 66 kg one in four week
     Route: 042
     Dates: start: 20080916
  4. TOCILIZUMAB [Suspect]
     Dosage: 528 mg per 66 kg one in four week
     Route: 042
     Dates: start: 20081014
  5. TOCILIZUMAB [Suspect]
     Dosage: 528 mg per 66 kg one in four week
     Route: 042
     Dates: start: 20081111
  6. TOCILIZUMAB [Suspect]
     Dosage: 528 mg per 66 kg one in four week
     Route: 042
     Dates: start: 20081209
  7. TOCILIZUMAB [Suspect]
     Dosage: 528 mg per 66 kg one in four week
     Route: 042
     Dates: start: 20080107
  8. TOCILIZUMAB [Suspect]
     Dosage: 528 mg per 66 kg one in four week
     Route: 042
     Dates: start: 20090203
  9. TOCILIZUMAB [Suspect]
     Dosage: 528 mg per 66 kg one in four week
     Route: 042
     Dates: start: 20090304
  10. TOCILIZUMAB [Suspect]
     Dosage: 528 mg per 66 kg one in four week
     Route: 042
     Dates: start: 20090331
  11. TOCILIZUMAB [Suspect]
     Dosage: 528 mg per 66 kg one in four week
     Route: 042
     Dates: start: 20090428
  12. TOCILIZUMAB [Suspect]
     Dosage: 528 mg per 66 kg one in four week
     Route: 042
     Dates: start: 20090602
  13. TOCILIZUMAB [Suspect]
     Dosage: 528 mg per 66 kg one in four week
     Route: 042
     Dates: end: 20090804
  14. PROGRAF [Suspect]
     Dosage: 2 DF, daliy
  15. RHEUMATREX [Suspect]
     Indication: RHEUMATOID ARTHRITIS
     Dosage: 6 mg, one in one week
     Route: 048
  16. ISCOTIN [Concomitant]
     Indication: ANTIBIOTIC PROPHYLAXIS
     Dosage: 100 mg, three in one day
     Route: 048
  17. FOLIAMIN [Concomitant]
     Indication: PROPHYLAXIS
     Dosage: 5 mg, one in one week
     Route: 048
  18. VOLTAREN [Concomitant]

REACTIONS (1)
  - Herpes zoster [Recovered/Resolved]
